FAERS Safety Report 25810834 (Version 1)
Quarter: 2025Q3

REPORT INFORMATION
  Report Type: Spontaneous
  Country: US (occurrence: US)
  Receive Date: 20250917
  Receipt Date: 20250917
  Transmission Date: 20251021
  Serious: Yes (Other)
  Sender: AMGEN
  Company Number: US-AMGEN-USASP2025181713

PATIENT
  Age: 6 Year
  Sex: Male

DRUGS (6)
  1. PREDNISONE [Suspect]
     Active Substance: PREDNISONE
     Indication: Product used for unknown indication
     Route: 065
  2. RITUXIMAB [Suspect]
     Active Substance: RITUXIMAB
     Indication: Neuromyelitis optica spectrum disorder
     Route: 065
  3. RITUXIMAB [Suspect]
     Active Substance: RITUXIMAB
     Dosage: 375 MILLIGRAM/SQ. METER, Q6MO
     Route: 065
  4. METHYLPREDNISOLONE [Concomitant]
     Active Substance: METHYLPREDNISOLONE
     Route: 040
  5. METHYLPREDNISOLONE [Concomitant]
     Active Substance: METHYLPREDNISOLONE
     Route: 040
  6. HUMAN IMMUNOGLOBULIN G [Concomitant]
     Active Substance: HUMAN IMMUNOGLOBULIN G
     Route: 040

REACTIONS (6)
  - Neuromyelitis optica spectrum disorder [Unknown]
  - Cranial nerve paralysis [Unknown]
  - Drug effective for unapproved indication [Unknown]
  - Blood immunoglobulin G decreased [Unknown]
  - Blood immunoglobulin M decreased [Unknown]
  - Off label use [Unknown]
